FAERS Safety Report 8190265-5 (Version None)
Quarter: 2012Q1

REPORT INFORMATION
  Report Type: 
  Country: None (occurrence: None)
  Receive Date: 20120307
  Receipt Date: 20120222
  Transmission Date: 20120608
  Serious: Yes (Other)
  Sender: FDA-Public Use
  Company Number: IT-MYLANLABS-2012S1004395

PATIENT
  Age: 8 Decade
  Sex: Male

DRUGS (8)
  1. DOXORUBICIN HCL [Suspect]
     Indication: NON-HODGKIN'S LYMPHOMA STAGE IV
     Dosage: CHOP REGIMEN
     Route: 065
     Dates: start: 20000901, end: 20010801
  2. VINCRISTINE [Suspect]
     Indication: NON-HODGKIN'S LYMPHOMA STAGE IV
     Dosage: CHOP REGIMEN
     Route: 065
     Dates: start: 20000901, end: 20010801
  3. PREDNISONE TAB [Suspect]
     Indication: NON-HODGKIN'S LYMPHOMA STAGE IV
     Dosage: CHOP REGIMEN
     Route: 065
     Dates: start: 20000901, end: 20010801
  4. RITUXIMAB [Suspect]
     Indication: NON-HODGKIN'S LYMPHOMA STAGE IV
     Dosage: FC-R REGIMEN, 6 CYCLES; THEN AS SINGLE AGENT
     Route: 065
     Dates: end: 20061201
  5. CYCLOPHOSPHAMIDE [Suspect]
     Indication: NON-HODGKIN'S LYMPHOMA STAGE IV
     Dosage: CHOP REGIMEN
     Route: 065
     Dates: start: 20000901, end: 20010801
  6. FLUDARABINE PHOSPHATE [Suspect]
     Indication: NON-HODGKIN'S LYMPHOMA STAGE IV
     Dosage: FC-R REGIMEN, 6 CYCLES
     Route: 065
     Dates: end: 20061201
  7. CYCLOPHOSPHAMIDE [Suspect]
     Dosage: FC-R REGIMEN, 6 CYCLES
     Route: 065
     Dates: end: 20061201
  8. RITUXIMAB [Suspect]
     Dosage: AS SINGLE AGENT, 3 CYCLES
     Route: 065
     Dates: end: 20080401

REACTIONS (5)
  - THROMBOCYTOPENIA [None]
  - LEUKOPENIA [None]
  - REFRACTORY CYTOPENIA WITH MULTILINEAGE DYSPLASIA [None]
  - ANAEMIA [None]
  - CYTOGENETIC ABNORMALITY [None]
